FAERS Safety Report 6240578-9 (Version None)
Quarter: 2009Q2

REPORT INFORMATION
  Report Type: 
  Country: None (occurrence: None)
  Receive Date: 20090623
  Receipt Date: 20081013
  Transmission Date: 20091009
  Serious: No
  Sender: FDA-Public Use
  Company Number: US-ASTRAZENECA-2008UW22502

PATIENT
  Age: 34 Year
  Sex: Female

DRUGS (3)
  1. PULMICORT FLEXHALER [Suspect]
     Dosage: 180 UG
     Route: 055
  2. PROAIR HFA [Concomitant]
  3. FLUTICASON [Concomitant]

REACTIONS (2)
  - MEDICATION ERROR [None]
  - TREMOR [None]
